FAERS Safety Report 9977451 (Version 1)
Quarter: 2014Q1

REPORT INFORMATION
  Report Type: Report from Study
  Country: US (occurrence: US)
  Receive Date: 20140306
  Receipt Date: 20140306
  Transmission Date: 20141002
  Serious: No
  Sender: FDA-Public Use
  Company Number: US-ABBVIE-13P-163-1162497-00

PATIENT
  Sex: Male

DRUGS (5)
  1. HUMIRA [Suspect]
     Indication: PSORIASIS
     Dates: start: 20131004, end: 20131004
  2. HUMIRA [Suspect]
     Dates: start: 20131011, end: 20131025
  3. LIPITOR [Concomitant]
     Indication: BLOOD CHOLESTEROL
     Dosage: DAILY
  4. LISINOPRIL [Concomitant]
     Indication: BLOOD PRESSURE
     Dosage: DAILY
  5. ASPIRIN [Concomitant]
     Indication: PRODUCT USED FOR UNKNOWN INDICATION
     Dosage: LOW DOSE DAILY

REACTIONS (2)
  - Headache [Not Recovered/Not Resolved]
  - Bronchitis [Not Recovered/Not Resolved]
